FAERS Safety Report 10777307 (Version 1)
Quarter: 2015Q1

REPORT INFORMATION
  Report Type: Report from Study
  Country: ZA (occurrence: ZA)
  Receive Date: 20150209
  Receipt Date: 20150209
  Transmission Date: 20150721
  Serious: Yes (Other)
  Sender: FDA-Public Use
  Company Number: PHHY2015ZA014687

PATIENT
  Age: 39 Year
  Sex: Female

DRUGS (9)
  1. ISONIAZID. [Suspect]
     Active Substance: ISONIAZID
     Indication: PULMONARY TUBERCULOSIS
     Dosage: UNK
     Route: 065
     Dates: start: 20140416
  2. NEVIRAPINE. [Suspect]
     Active Substance: NEVIRAPINE
     Indication: ANTIVIRAL TREATMENT
     Dosage: 400 MG, QD
     Route: 048
     Dates: start: 20050501, end: 20140408
  3. TENOFOVIR DISOPROXIL FUMARATE [Suspect]
     Active Substance: TENOFOVIR DISOPROXIL FUMARATE
     Indication: ANTIVIRAL TREATMENT
     Dosage: 300 MG, QD
     Route: 048
     Dates: start: 20140408
  4. ETHAMBUTOL [Suspect]
     Active Substance: ETHAMBUTOL HYDROCHLORIDE
     Indication: PULMONARY TUBERCULOSIS
     Dosage: UNK
     Route: 065
     Dates: start: 20140416
  5. RIFAMPIN. [Suspect]
     Active Substance: RIFAMPIN
     Indication: PULMONARY TUBERCULOSIS
     Dosage: UNK
     Route: 065
     Dates: start: 20140416
  6. KALETRA [Suspect]
     Active Substance: LOPINAVIR\RITONAVIR
     Indication: ANTIVIRAL TREATMENT
     Dosage: 8 OT, QD 8 (TAB)
     Route: 048
     Dates: start: 20140408
  7. STAVUDINE. [Suspect]
     Active Substance: STAVUDINE
     Indication: ANTIVIRAL TREATMENT
     Dosage: 60 MG, QD
     Route: 048
     Dates: start: 20050501, end: 20140108
  8. LAMIVUDINE. [Suspect]
     Active Substance: LAMIVUDINE
     Indication: ANTIVIRAL TREATMENT
     Dosage: 300 MG, QD
     Route: 048
     Dates: start: 20050501
  9. PYRAZINAMIDE. [Suspect]
     Active Substance: PYRAZINAMIDE
     Indication: PULMONARY TUBERCULOSIS
     Dosage: UNK
     Route: 065
     Dates: start: 20140416

REACTIONS (6)
  - Placental disorder [Unknown]
  - Premature labour [Unknown]
  - Umbilical cord vascular disorder [Unknown]
  - Placental insufficiency [Unknown]
  - Oligohydramnios [Unknown]
  - Exposure during pregnancy [Unknown]

NARRATIVE: CASE EVENT DATE: 20140710
